FAERS Safety Report 7283437-5 (Version None)
Quarter: 2011Q1

REPORT INFORMATION
  Report Type: 
  Country: None (occurrence: None)
  Receive Date: 20110204
  Receipt Date: 20110204
  Transmission Date: 20110831
  Serious: Yes (Other)
  Sender: FDA-Public Use
  Company Number: None

PATIENT
  Sex: Male
  Weight: 79.3795 kg

DRUGS (1)
  1. AGGRENOX [Suspect]
     Indication: ANTICOAGULANT THERAPY
     Dosage: 25/200 MG 2 TIMES PER DAY MOUTH
     Route: 048
     Dates: start: 20110101

REACTIONS (3)
  - DYSPEPSIA [None]
  - ABDOMINAL DISCOMFORT [None]
  - BLOOD GLUCOSE INCREASED [None]
